FAERS Safety Report 7108679-0 (Version None)
Quarter: 2010Q4

REPORT INFORMATION
  Report Type: 
  Country: None (occurrence: None)
  Receive Date: 20101117
  Receipt Date: 20101112
  Transmission Date: 20110411
  Serious: Yes (Death, Hospitalization)
  Sender: FDA-Public Use
  Company Number: GB-ROCHE-741441

PATIENT
  Sex: Female
  Weight: 66 kg

DRUGS (3)
  1. TRASTUZUMAB [Suspect]
     Dosage: DOSE: 6 MG/KG, FORM: VIALS, LAST DOSE PRIOR TO SAE: 05 NOVEMBER 2010
     Route: 042
     Dates: start: 20100716
  2. CARBOPLATIN [Suspect]
     Dosage: DOSE: 6 AUC, FORM: VIALS, LAST DOSE PRIOR TO SAE: 05 NOVEMBER 2010
     Route: 042
     Dates: start: 20100716
  3. DOCETAXEL [Suspect]
     Dosage: DOSE: 75 MG/M2, FORM: VIALS, LAST DOSE PRIOR TO SAE: 05 NOVEMBER 2010
     Route: 042
     Dates: start: 20100716

REACTIONS (6)
  - BLOOD BICARBONATE DECREASED [None]
  - BLOOD CREATININE INCREASED [None]
  - BLOOD UREA INCREASED [None]
  - C-REACTIVE PROTEIN INCREASED [None]
  - NEUTROPENIA [None]
  - NEUTROPHIL COUNT [None]
